FAERS Safety Report 7261638-X (Version None)
Quarter: 2011Q1

REPORT INFORMATION
  Report Type: 
  Country: None (occurrence: None)
  Receive Date: 20110130
  Receipt Date: 20101022
  Transmission Date: 20110831
  Serious: No
  Sender: FDA-Public Use
  Company Number: US-ABBOTT-10P-163-0680559-00

PATIENT
  Age: 64 Year
  Sex: Female

DRUGS (5)
  1. HUMIRA [Suspect]
     Indication: CROHN'S DISEASE
     Dates: start: 20100620, end: 20101020
  2. ALBUTEROL [Concomitant]
     Indication: ASTHMA
  3. VICODIN [Concomitant]
     Indication: PAIN
  4. IMODIUM [Concomitant]
     Indication: PRODUCT USED FOR UNKNOWN INDICATION
  5. PENTASA [Concomitant]
     Indication: CROHN'S DISEASE

REACTIONS (6)
  - DYSPNOEA [None]
  - HEADACHE [None]
  - DRUG DOSE OMISSION [None]
  - PYREXIA [None]
  - NASOPHARYNGITIS [None]
  - PRODUCTIVE COUGH [None]
